FAERS Safety Report 18276755 (Version 1)
Quarter: 2020Q3

REPORT INFORMATION
  Report Type: Spontaneous
  Country: DE (occurrence: DE)
  Receive Date: 20200917
  Receipt Date: 20200917
  Transmission Date: 20201103
  Serious: Yes (Hospitalization)
  Sender: FDA-Public Use
  Company Number: NVSC2020DE248625

PATIENT
  Age: 6 Month
  Sex: Male
  Weight: 5 kg

DRUGS (5)
  1. NEXIUM [Concomitant]
     Active Substance: ESOMEPRAZOLE MAGNESIUM
     Indication: PROPHYLAXIS AGAINST GASTROINTESTINAL ULCER
     Dosage: 1 DF, QD
     Route: 048
     Dates: start: 201811
  2. ASPIRIN. [Concomitant]
     Active Substance: ASPIRIN
     Indication: PLATELET AGGREGATION INHIBITION
     Dosage: 2 DF, QD
     Route: 048
     Dates: start: 201811
  3. COTRIM K [Suspect]
     Active Substance: SULFAMETHOXAZOLE\TRIMETHOPRIM
     Indication: PROPHYLAXIS
     Dosage: UNK (2.5 ? 0 ?2.5)
     Route: 048
     Dates: start: 201811
  4. RAPAMYCIN [Suspect]
     Active Substance: SIROLIMUS
     Indication: HAEMANGIOMA
     Dosage: 1 UNK
     Route: 048
     Dates: start: 201811
  5. PREDNISOLONE. [Suspect]
     Active Substance: PREDNISOLONE
     Indication: HAEMANGIOMA
     Dosage: 1 DF, QD
     Route: 048
     Dates: start: 201811

REACTIONS (3)
  - Vomiting [Unknown]
  - Nausea [Unknown]
  - Pneumonia [Unknown]

NARRATIVE: CASE EVENT DATE: 20190403
